FAERS Safety Report 4709094-7 (Version None)
Quarter: 2005Q3

REPORT INFORMATION
  Report Type: 
  Country: None (occurrence: None)
  Receive Date: 20050707
  Receipt Date: 20050707
  Transmission Date: 20060218
  Serious: No
  Sender: FDA-Public Use
  Company Number: None

PATIENT
  Sex: Male

DRUGS (6)
  1. RISPERDAL [Suspect]
     Indication: SCHIZOPHRENIA
     Dosage: 4MG BID ORAL
     Route: 048
     Dates: start: 20050502, end: 20050616
  2. HALOPERIDOL DECANOATE [Concomitant]
  3. HALOPERIDOL [Concomitant]
  4. INDERAL [Concomitant]
  5. VALIUM [Concomitant]
  6. COGENTIN [Concomitant]

REACTIONS (2)
  - PERINEAL PAIN [None]
  - PRIAPISM [None]
